FAERS Safety Report 9321132 (Version 2)
Quarter: 2014Q2

REPORT INFORMATION
  Report Type: Spontaneous
  Country: US (occurrence: US)
  Receive Date: 20130531
  Receipt Date: 20140404
  Transmission Date: 20141212
  Serious: No
  Sender: FDA-Public Use
  Company Number: US-PFIZER INC-2013163552

PATIENT
  Age: 80 Year
  Sex: Female
  Weight: 72.6 kg

DRUGS (3)
  1. LEVOXYL [Suspect]
     Indication: THYROID DISORDER
     Dosage: 75 UG, 1X/DAY
     Route: 048
     Dates: end: 201304
  2. LEVOXYL [Suspect]
     Dosage: UNK
     Dates: start: 201403
  3. PROPRANOLOL [Concomitant]
     Indication: TACHYCARDIA
     Dosage: UNK

REACTIONS (5)
  - Fatigue [Unknown]
  - Hot flush [Unknown]
  - Erythema [Unknown]
  - Dizziness [Recovered/Resolved]
  - Vertigo [Recovered/Resolved]
